FAERS Safety Report 18394363 (Version 1)
Quarter: 2020Q4

REPORT INFORMATION
  Report Type: Spontaneous
  Country: US (occurrence: US)
  Receive Date: 20201017
  Receipt Date: 20201017
  Transmission Date: 20210114
  Serious: No
  Sender: FDA-Public Use
  Company Number: US-SA-2020SA290998

PATIENT

DRUGS (1)
  1. APIDRA [Suspect]
     Active Substance: INSULIN GLULISINE
     Dosage: UNK UNK, BEFORE EACH MEAL
     Route: 065
     Dates: start: 202009

REACTIONS (2)
  - Feeling abnormal [Recovered/Resolved]
  - Sleep deficit [Unknown]

NARRATIVE: CASE EVENT DATE: 2020
